FAERS Safety Report 6414543-2 (Version None)
Quarter: 2009Q4

REPORT INFORMATION
  Report Type: 
  Country: None (occurrence: None)
  Receive Date: 20091021
  Receipt Date: 20091006
  Transmission Date: 20100525
  Serious: Yes (Death, Hospitalization)
  Sender: FDA-Public Use
  Company Number: 2009002030

PATIENT
  Age: 67 Year
  Sex: Male

DRUGS (10)
  1. ERLOTINIB HYDROCHLORIDE [Suspect]
     Indication: NON-SMALL CELL LUNG CANCER
     Dosage: (150 MG, QD), ORAL
     Route: 048
     Dates: start: 20090105, end: 20090113
  2. BUFFERIN [Concomitant]
  3. DILTIAZEM HYDROCHLORIDE [Concomitant]
  4. ISOSORBIDE MONONITRATE [Concomitant]
  5. PANVITAN (PANVITAN) [Concomitant]
  6. BASEN (VOGLIBOSE) [Concomitant]
  7. MUCODYNE (CARBOCISTEINE) [Concomitant]
  8. FAMOTIDINE [Concomitant]
  9. GLIMICRON (GLICLAZIDE) [Concomitant]
  10. PIPERACILLIN [Concomitant]

REACTIONS (9)
  - AGEUSIA [None]
  - BACTERIAL INFECTION [None]
  - CHLAMYDIA TEST POSITIVE [None]
  - CONDITION AGGRAVATED [None]
  - DECREASED APPETITE [None]
  - DYSPNOEA [None]
  - INTERSTITIAL LUNG DISEASE [None]
  - LUNG NEOPLASM MALIGNANT [None]
  - SPUTUM CULTURE POSITIVE [None]
